FAERS Safety Report 5267737-6 (Version None)
Quarter: 2007Q1

REPORT INFORMATION
  Report Type: 
  Country: None (occurrence: None)
  Receive Date: 20070316
  Receipt Date: 20070306
  Transmission Date: 20070707
  Serious: Yes (Hospitalization, Other)
  Sender: FDA-Public Use
  Company Number: US-PFIZER INC-2007014062

PATIENT
  Sex: Female
  Weight: 75.3 kg

DRUGS (2)
  1. CELEBREX [Suspect]
     Indication: ARTHRITIS
     Dosage: DAILY DOSE:200MG-FREQ:DAILY
     Dates: start: 20030101
  2. BEXTRA [Suspect]
     Indication: ARTHRITIS
     Dosage: DAILY DOSE:10MG-FREQ:DAILY

REACTIONS (2)
  - CARDIOVASCULAR DISORDER [None]
  - CEREBROVASCULAR ACCIDENT [None]
